FAERS Safety Report 16146612 (Version 1)
Quarter: 2019Q2

REPORT INFORMATION
  Report Type: Spontaneous
  Country: IT (occurrence: IT)
  Receive Date: 20190402
  Receipt Date: 20190402
  Transmission Date: 20190711
  Serious: Yes (Other)
  Sender: FDA-Public Use
  Company Number: IT-ROCHE-2292997

PATIENT
  Age: 61 Year
  Sex: Male

DRUGS (2)
  1. RITUXIMAB. [Suspect]
     Active Substance: RITUXIMAB
     Indication: GRANULOMATOSIS WITH POLYANGIITIS
     Route: 065
     Dates: start: 200703, end: 201107
  2. CYCLOPHOSPHAMIDE. [Suspect]
     Active Substance: CYCLOPHOSPHAMIDE
     Indication: GRANULOMATOSIS WITH POLYANGIITIS
     Route: 065

REACTIONS (12)
  - Pneumonia [Unknown]
  - Intestinal perforation [Unknown]
  - Pyrexia [Unknown]
  - Hypogammaglobulinaemia [Unknown]
  - Neutrophilia [Unknown]
  - Intentional product use issue [Unknown]
  - Ear infection [Unknown]
  - Peritonitis [Unknown]
  - Lymphopenia [Unknown]
  - Sinusitis [Unknown]
  - Leukocytosis [Unknown]
  - Off label use [Unknown]
